FAERS Safety Report 21383885 (Version 1)
Quarter: 2022Q3

REPORT INFORMATION
  Report Type: Spontaneous
  Country: ES (occurrence: ES)
  Receive Date: 20220928
  Receipt Date: 20220928
  Transmission Date: 20221027
  Serious: Yes (Other)
  Sender: FDA-Public Use
  Company Number: None

PATIENT
  Age: 54 Year
  Sex: Male
  Weight: 106 kg

DRUGS (9)
  1. AMLODIPINE [Suspect]
     Active Substance: AMLODIPINE BESYLATE
     Indication: Product used for unknown indication
     Dosage: AMLODIPIN (2503A), DURATION : 1415 DAYS
     Route: 065
     Dates: start: 20181019, end: 20220902
  2. ATORVASTATIN [Suspect]
     Active Substance: ATORVASTATIN
     Indication: Product used for unknown indication
     Dosage: ATORVASTATIN (7400A), THERAPY END DATE : NASK
     Route: 065
     Dates: start: 20210127
  3. RANEXA [Suspect]
     Active Substance: RANOLAZINE
     Indication: Product used for unknown indication
     Dosage: STRENGTH : 375 MG, THERAPY END DATE : NASK
     Route: 065
     Dates: start: 20170123
  4. RIVOTRIL [Suspect]
     Active Substance: CLONAZEPAM
     Indication: Product used for unknown indication
     Dosage: THERAPY END DATE : NASK
     Route: 065
     Dates: start: 20160714
  5. ASPIRIN [Concomitant]
     Active Substance: ASPIRIN
     Indication: Product used for unknown indication
     Dosage: ACETYLSALICYLIC ACID (176A)
     Dates: start: 20110107
  6. OMEPRAZOLE [Concomitant]
     Active Substance: OMEPRAZOLE
     Indication: Product used for unknown indication
     Dosage: OMEPRAZOL (2141A)
     Dates: start: 20191009
  7. TRINISPRAY [Concomitant]
     Indication: Product used for unknown indication
     Dosage: 0.4 MG / 0.05 ML SOLUTION FOR SUBLINGUAL SPRAY
     Dates: start: 20181114
  8. EZETIMIBE [Concomitant]
     Active Substance: EZETIMIBE
     Indication: Product used for unknown indication
     Dosage: EZETIMIB (7432A), DURATION : 2285 DAYS
     Dates: start: 20160601, end: 20220902
  9. METFORMIN [Concomitant]
     Active Substance: METFORMIN HYDROCHLORIDE
     Indication: Product used for unknown indication
     Dosage: METFORMINA (1359A)
     Dates: start: 20170111

REACTIONS (2)
  - Erectile dysfunction [Unknown]
  - Oedema peripheral [Unknown]

NARRATIVE: CASE EVENT DATE: 20220902
